FAERS Safety Report 6272294-1 (Version None)
Quarter: 2009Q3

REPORT INFORMATION
  Report Type: 
  Country: None (occurrence: None)
  Receive Date: 20090717
  Receipt Date: 20090709
  Transmission Date: 20100115
  Serious: Yes (Other)
  Sender: FDA-Public Use
  Company Number: US-ASTRAZENECA-2008UW11449

PATIENT
  Age: 45 Year
  Sex: Female
  Weight: 79.8 kg

DRUGS (6)
  1. SEROQUEL XR [Suspect]
     Indication: BIPOLAR DISORDER
     Route: 048
     Dates: start: 20040101
  2. AMBIEN [Concomitant]
  3. TEGRETOL-XR [Concomitant]
     Route: 048
  4. LEVOTHYROXINE SODIUM [Concomitant]
  5. LAMICTAL [Concomitant]
     Route: 048
  6. PAROXETINE HCL [Concomitant]
     Route: 048

REACTIONS (7)
  - ANXIETY [None]
  - EYE INFECTION [None]
  - HYPOTHYROIDISM [None]
  - INSOMNIA [None]
  - VISUAL ACUITY REDUCED [None]
  - VISUAL IMPAIRMENT [None]
  - WEIGHT INCREASED [None]
